FAERS Safety Report 5711329-9 (Version None)
Quarter: 2008Q2

REPORT INFORMATION
  Report Type: 
  Country: None (occurrence: None)
  Receive Date: 20080421
  Receipt Date: 20080411
  Transmission Date: 20081010
  Serious: Yes (Other)
  Sender: FDA-Public Use
  Company Number: A0711615A

PATIENT
  Age: 67 Year
  Sex: Male
  Weight: 114.1 kg

DRUGS (8)
  1. REQUIP [Suspect]
     Indication: RESTLESS LEGS SYNDROME
     Dosage: 1MG AT NIGHT
     Route: 048
     Dates: start: 20071101, end: 20080110
  2. ATENOLOL [Concomitant]
  3. ASPIRIN [Concomitant]
  4. TESTOSTERONE [Concomitant]
  5. NAPROSYN [Concomitant]
  6. TERAZOSIN HCL [Concomitant]
  7. NIASPAN [Concomitant]
  8. OMACOR [Concomitant]

REACTIONS (3)
  - PHOTOPSIA [None]
  - RETINAL INJURY [None]
  - VITREOUS DETACHMENT [None]
